FAERS Safety Report 5127820-2 (Version None)
Quarter: 2006Q4

REPORT INFORMATION
  Report Type: 
  Country: None (occurrence: None)
  Receive Date: 20061016
  Receipt Date: 20061011
  Transmission Date: 20070319
  Serious: Yes (Hospitalization)
  Sender: FDA-Public Use
  Company Number: IT-ROCHE-466715

PATIENT
  Age: 40 Year
  Sex: Male

DRUGS (3)
  1. ROCEPHIN [Suspect]
     Indication: DELIRIUM TREMENS
     Dosage: FORM REPORTED AS VIAL.
     Route: 030
     Dates: start: 20061004, end: 20061004
  2. TATIONIL [Concomitant]
     Dosage: FORM REPORTED AS VIAL.
     Route: 042
  3. VALIUM [Concomitant]
     Dosage: FORM REPORTED AS VIAL.
     Route: 042

REACTIONS (2)
  - ERYTHEMA [None]
  - URTICARIA [None]
